FAERS Safety Report 17648093 (Version 4)
Quarter: 2020Q2

REPORT INFORMATION
  Report Type: Spontaneous
  Country: US (occurrence: US)
  Receive Date: 20200408
  Receipt Date: 20200504
  Transmission Date: 20200713
  Serious: Yes (Death, Hospitalization, Other)
  Sender: FDA-Public Use
  Company Number: US-PFIZER INC-2020030583

PATIENT
  Age: 76 Year
  Sex: Female

DRUGS (10)
  1. ALBUTEROL [SALBUTAMOL] [Concomitant]
     Active Substance: ALBUTEROL
     Dosage: 2 DF(EVERY 4 HOURS)
     Route: 055
     Dates: end: 20200225
  2. CENTRUM SILVER [Concomitant]
     Active Substance: MINERALS\VITAMINS
     Dosage: 1 DF, 1X/DAY(EVERY 24 HOURS)
     Route: 048
     Dates: end: 20200213
  3. CEPHALEXIN [CEFALEXIN] [Concomitant]
     Active Substance: CEPHALEXIN
     Dosage: 500 MG, 2X/DAY
     Route: 048
     Dates: start: 20150716, end: 20150722
  4. PNEUMOCOCCAL VACCINE 13V [Concomitant]
     Dosage: UNK
     Dates: start: 20171120, end: 20171120
  5. CALCIUM CARBONATE. [Concomitant]
     Active Substance: CALCIUM CARBONATE
     Dosage: 600 MG, DAILY (ADMINISTERED AFTER FOOD OR A MEAL)
     Route: 048
     Dates: end: 20200213
  6. ASPIRIN. [Concomitant]
     Active Substance: ASPIRIN
     Dosage: 81 MG, DAILY
     Route: 048
     Dates: end: 20200225
  7. AMLODIPINE [Concomitant]
     Active Substance: AMLODIPINE BESYLATE
     Dosage: 5 MG, DAILY
     Route: 048
     Dates: end: 20200225
  8. FUROSEMIDE. [Concomitant]
     Active Substance: FUROSEMIDE
     Dosage: 20 MG, DAILY
     Route: 048
     Dates: end: 20200225
  9. INFLUENZA VACCIN [Concomitant]
     Active Substance: INFLUENZA VIRUS VACCINE
     Dosage: UNK
  10. IBRANCE [Suspect]
     Active Substance: PALBOCICLIB
     Indication: BREAST CANCER FEMALE
     Dosage: 125 MG, CYCLIC (125MG- 1 DAILY X21 DAYS OFF 7 DAYS REPEAT)
     Route: 048
     Dates: start: 20200114, end: 20200228

REACTIONS (4)
  - Lung neoplasm malignant [Fatal]
  - Neoplasm progression [Fatal]
  - Chronic obstructive pulmonary disease [Unknown]
  - Second primary malignancy [Fatal]

NARRATIVE: CASE EVENT DATE: 20200228
